FAERS Safety Report 18156895 (Version 1)
Quarter: 2020Q3

REPORT INFORMATION
  Report Type: Spontaneous
  Country: US (occurrence: US)
  Receive Date: 20200817
  Receipt Date: 20200817
  Transmission Date: 20201103
  Serious: Yes (Hospitalization)
  Sender: FDA-Public Use
  Company Number: None

PATIENT
  Sex: Male

DRUGS (16)
  1. PROMACTA [Suspect]
     Active Substance: ELTROMBOPAG OLAMINE
     Indication: IMMUNE THROMBOCYTOPENIA
     Route: 048
     Dates: start: 20181009
  2. ATORVASTATIN [Concomitant]
     Active Substance: ATORVASTATIN
  3. TRANEX ACID [Concomitant]
  4. CEPHALEXIN. [Concomitant]
     Active Substance: CEPHALEXIN
  5. NEUPOGEN [Concomitant]
     Active Substance: FILGRASTIM
  6. FOLIC ACID. [Concomitant]
     Active Substance: FOLIC ACID
  7. METOPROLOL TARTRATE. [Concomitant]
     Active Substance: METOPROLOL TARTRATE
  8. PREDNISONE. [Concomitant]
     Active Substance: PREDNISONE
  9. FUROSEMIDE. [Concomitant]
     Active Substance: FUROSEMIDE
  10. FLUCONAZOLE. [Concomitant]
     Active Substance: FLUCONAZOLE
  11. OXYCONTIN [Concomitant]
     Active Substance: OXYCODONE HYDROCHLORIDE
  12. AMLODIPINE [Concomitant]
     Active Substance: AMLODIPINE BESYLATE
  13. CALCITRIOL. [Concomitant]
     Active Substance: CALCITRIOL
  14. CRESEMBA [Concomitant]
     Active Substance: ISAVUCONAZONIUM SULFATE
  15. DANAZOL. [Concomitant]
     Active Substance: DANAZOL
  16. ISOSORB [Concomitant]

REACTIONS (2)
  - Therapy change [None]
  - Hospitalisation [None]
